FAERS Safety Report 4610960-1 (Version None)
Quarter: 2005Q1

REPORT INFORMATION
  Report Type: 
  Country: None (occurrence: None)
  Receive Date: 20050315
  Receipt Date: 20050315
  Transmission Date: 20050727
  Serious: Yes (Other)
  Sender: FDA-Public Use
  Company Number: None

PATIENT
  Sex: Male
  Weight: 24.9478 kg

DRUGS (3)
  1. ADDERALL 10 [Suspect]
     Indication: ATTENTION DEFICIT/HYPERACTIVITY DISORDER
     Dosage: 10 MG ONCE DAILY ORALLY
     Route: 048
     Dates: start: 20041201, end: 20050214
  2. ADDERALL 20 [Suspect]
     Dosage: 20 MG ONCE DAILY ORALLY
     Route: 048
     Dates: start: 20050215, end: 20050302
  3. FLINTSTONES CHEWABLE MULTIVITAMINS [Concomitant]

REACTIONS (4)
  - ALLERGY TO ANIMAL [None]
  - BUNDLE BRANCH BLOCK [None]
  - COUGH [None]
  - DRUG EFFECT DECREASED [None]
